FAERS Safety Report 18227899 (Version 1)
Quarter: 2020Q3

REPORT INFORMATION
  Report Type: Spontaneous
  Country: US (occurrence: US)
  Receive Date: 20200902
  Receipt Date: 20200902
  Transmission Date: 20201103
  Serious: Yes (Death)
  Sender: FDA-Public Use
  Company Number: None

PATIENT
  Age: 94 Year
  Sex: Female
  Weight: 40.82 kg

DRUGS (1)
  1. HALDOL [Suspect]
     Active Substance: HALOPERIDOL
     Indication: RESTLESS LEGS SYNDROME
     Dosage: ?          QUANTITY:4 DF DOSAGE FORM;OTHER FREQUENCY:4 INJECTION IN 7 H;OTHER ROUTE:INJECTION IN HOSPITAL?
     Dates: start: 202002

REACTIONS (2)
  - Product use in unapproved indication [None]
  - Sudden death [None]
